FAERS Safety Report 8138827-5 (Version None)
Quarter: 2012Q1

REPORT INFORMATION
  Report Type: 
  Country: None (occurrence: None)
  Receive Date: 20120215
  Receipt Date: 20111003
  Transmission Date: 20120608
  Serious: No
  Sender: FDA-Public Use
  Company Number: US-ASTRAZENECA-2011SE58982

PATIENT

DRUGS (3)
  1. ALPRAZOLAM [Concomitant]
  2. PLENDIL [Suspect]
     Indication: HYPERTENSION
     Route: 048
  3. INDERAL [Suspect]
     Route: 048

REACTIONS (2)
  - PSYCHOMOTOR HYPERACTIVITY [None]
  - WRONG TECHNIQUE IN DRUG USAGE PROCESS [None]
